FAERS Safety Report 15517668 (Version 7)
Quarter: 2019Q1

REPORT INFORMATION
  Report Type: Spontaneous
  Country: US (occurrence: US)
  Receive Date: 20181017
  Receipt Date: 20190320
  Transmission Date: 20190417
  Serious: Yes (Hospitalization, Other)
  Sender: FDA-Public Use
  Company Number: US-PFIZER INC-2016570369

PATIENT
  Age: 56 Year
  Sex: Female
  Weight: 82 kg

DRUGS (34)
  1. PROVENTIL HFA [Concomitant]
     Active Substance: ALBUTEROL SULFATE
     Dosage: 2 PUFFS INHALED ORALLY EVERY 4 HOURS AS NEEDED)
     Route: 055
  2. PROZAC [Concomitant]
     Active Substance: FLUOXETINE HYDROCHLORIDE
     Dosage: 60 MG, 1X/DAY (3 TABS PO Q AM)
     Route: 048
  3. CYMBALTA [Concomitant]
     Active Substance: DULOXETINE HYDROCHLORIDE
     Dosage: 60 MG, 1X/DAY
     Route: 048
     Dates: end: 20120912
  4. JANUMET [Concomitant]
     Active Substance: METFORMIN HYDROCHLORIDE\SITAGLIPTIN PHOSPHATE
     Dosage: UNK, (METFORMIN 500 MG/SITAGLIPTIN 50 MG)
     Route: 048
     Dates: start: 20120201, end: 20120912
  5. SIMVASTATIN. [Concomitant]
     Active Substance: SIMVASTATIN
     Dosage: 40 MG, UNK
     Dates: end: 20140620
  6. VENLAFAXINE HYDROCHLORIDE. [Concomitant]
     Active Substance: VENLAFAXINE HYDROCHLORIDE
     Dosage: 150 MG, DAILY
     Route: 048
     Dates: end: 20130913
  7. SYMBICORT [Concomitant]
     Active Substance: BUDESONIDE\FORMOTEROL FUMARATE DIHYDRATE
     Dosage: UNK, 2X/DAY (2 INHALATIONS INHALED) [BUDESONIDE 160 MCG/FORMOTEROL 4.5 MCG]
     Route: 055
     Dates: start: 20151211
  8. NORCO [Concomitant]
     Active Substance: ACETAMINOPHEN\HYDROCODONE BITARTRATE
     Dosage: UNK, 2X/DAY (HYDROCODONE BITARTRATE 7.5 MG/ACETAMINOPHEN 325 MG)
     Route: 048
     Dates: start: 20160418
  9. AMARYL [Concomitant]
     Active Substance: GLIMEPIRIDE
     Dosage: 4 MG, 2X/DAY
     Route: 048
     Dates: end: 20141222
  10. MIRTAZAPINE. [Concomitant]
     Active Substance: MIRTAZAPINE
     Indication: INSOMNIA
     Dosage: 7.5 MG, DAILY (DAILY HS)
     Route: 048
  11. VICODIN ES [Concomitant]
     Active Substance: ACETAMINOPHEN\HYDROCODONE BITARTRATE
     Indication: PAIN
     Dosage: 1 DF, AS NEEDED (HYDROCODONE BITARTRATE 7.5 MG/ACETAMINOPHEN 750 MG) TID PRN
     Route: 048
     Dates: start: 20121212, end: 20140120
  12. ROXICET [Concomitant]
     Active Substance: ACETAMINOPHEN\OXYCODONE HYDROCHLORIDE
     Indication: PAIN
     Dosage: 1 DF, AS NEEDED (ACETAMINOPHEN 500 MG/OXYCODONE 5 MG)
     Route: 048
     Dates: end: 20121212
  13. TEGRETOL [Concomitant]
     Active Substance: CARBAMAZEPINE
     Dosage: 600 MG, DAILY (TAKE ONE TAB PO AM AND TWO PO Q HS)
     Route: 048
     Dates: end: 20141222
  14. ADVAIR HFA [Concomitant]
     Active Substance: FLUTICASONE PROPIONATE\SALMETEROL XINAFOATE
     Dosage: UNK, 2X/DAY (FLUTICASONE PROPIONATE 250 MCG, SALMETEROL, 1 PUFF INHALED ORALLY 2 TIMES PER DAY)
     Route: 055
     Dates: end: 20151211
  15. SIMVASTATIN. [Concomitant]
     Active Substance: SIMVASTATIN
     Dosage: 20 MG, UNK
     Route: 048
     Dates: start: 20120605, end: 20130607
  16. JANUVIA [Concomitant]
     Active Substance: SITAGLIPTIN PHOSPHATE
     Dosage: 100 MG, DAILY
     Route: 048
     Dates: end: 20160418
  17. BELSOMRA [Concomitant]
     Active Substance: SUVOREXANT
     Dosage: 10 MG, UNK
     Route: 048
     Dates: end: 20160921
  18. AMBIEN [Concomitant]
     Active Substance: ZOLPIDEM TARTRATE
     Dosage: 10 MG, 1X/DAY (TAKE ONE TAB PO Q HS )
     Route: 048
     Dates: end: 20160921
  19. GLUCOPHAGE LA [Concomitant]
     Active Substance: METFORMIN HYDROCHLORIDE
     Dosage: 500 MG, DAILY
     Route: 048
  20. SIMVASTATIN. [Concomitant]
     Active Substance: SIMVASTATIN
     Dosage: 40 MG, 1X/DAY
     Route: 048
     Dates: start: 20150323, end: 20160823
  21. HUMALOG [Concomitant]
     Active Substance: INSULIN LISPRO
     Dosage: UNK, AS NEEDED
     Route: 058
  22. AZITHROMYCIN ANHYDROUS. [Concomitant]
     Active Substance: AZITHROMYCIN ANHYDROUS
     Dosage: UNK, DAILY (TWO TABS ON DAY ONE THEN 1 TAB DAILY DAYS 2-5)
     Route: 048
     Dates: end: 20160809
  23. FLUOXETINE HCL [Concomitant]
     Active Substance: FLUOXETINE HYDROCHLORIDE
     Dosage: 40 MG, 2X/DAY
     Route: 048
     Dates: start: 20110808, end: 20120912
  24. ADVAIR HFA [Concomitant]
     Active Substance: FLUTICASONE PROPIONATE\SALMETEROL XINAFOATE
     Dosage: UNK, 2X/DAY (FLUTICASONE PROPIONATE 100 MCG, SALMETEROL, 1 PUFF INHALED ORALLY 2 TIMES PER DAY)
     Route: 055
     Dates: end: 20151211
  25. ZOLOFT [Concomitant]
     Active Substance: SERTRALINE HYDROCHLORIDE
     Dosage: 50 MG, 1X/DAY
     Route: 048
     Dates: end: 20120912
  26. CYMBALTA [Concomitant]
     Active Substance: DULOXETINE HYDROCHLORIDE
     Dosage: 30 MG, 1X/DAY
     Route: 048
     Dates: end: 20120912
  27. FENOBIBRATE [Concomitant]
     Active Substance: FENOFIBRATE
     Dosage: 160 MG, DAILY
     Route: 048
     Dates: start: 20121001, end: 20130607
  28. LEVEMIR [Concomitant]
     Active Substance: INSULIN DETEMIR
     Dosage: UNK, INJECT 50 AM AND 80 HS
     Route: 058
     Dates: end: 20130913
  29. LANSOPRAZOLE. [Concomitant]
     Active Substance: LANSOPRAZOLE
     Dosage: 30 MG, 1X/DAY
     Route: 048
     Dates: end: 20120912
  30. TRANSDERM SCOP [Concomitant]
     Active Substance: SCOPOLAMINE
     Dosage: 1.5 MG, AS NEEDED
     Dates: start: 20120712, end: 20130913
  31. LYRICA [Suspect]
     Active Substance: PREGABALIN
     Indication: FIBROMYALGIA
     Dosage: 300 MG, 2X/DAY
     Route: 048
     Dates: start: 20120912
  32. PANTOPRAZOLE [Concomitant]
     Active Substance: PANTOPRAZOLE
     Dosage: 40 MG, 1X/DAY
     Route: 048
     Dates: start: 20120508, end: 20140620
  33. GEMFIBROZIL. [Concomitant]
     Active Substance: GEMFIBROZIL
     Dosage: 600 MG, 2X/DAY
     Route: 048
     Dates: end: 20141222
  34. SIMVASTATIN. [Concomitant]
     Active Substance: SIMVASTATIN
     Dosage: 20 MG, 1X/DAY (EVENING)
     Route: 048
     Dates: end: 20160823

REACTIONS (13)
  - Vomiting [Recovered/Resolved]
  - Withdrawal syndrome [Unknown]
  - Crying [Unknown]
  - Pyrexia [Recovered/Resolved]
  - Incoherent [Recovering/Resolving]
  - Chills [Recovered/Resolved]
  - Tremor [Recovering/Resolving]
  - Amnesia [Unknown]
  - Product use issue [Unknown]
  - Dehydration [Unknown]
  - Feeling abnormal [Unknown]
  - Diarrhoea [Recovering/Resolving]
  - Malaise [Not Recovered/Not Resolved]

NARRATIVE: CASE EVENT DATE: 20120912
